FAERS Safety Report 9178956 (Version 1)
Quarter: 2013Q1

REPORT INFORMATION
  Report Type: Spontaneous
  Country: CH (occurrence: CH)
  Receive Date: 20130321
  Receipt Date: 20130321
  Transmission Date: 20140127
  Serious: Yes (Death, Other)
  Sender: FDA-Public Use
  Company Number: CH-ROCHE-1203263

PATIENT
  Age: 80 Year
  Sex: Female

DRUGS (1)
  1. XELODA [Suspect]
     Indication: BREAST CANCER
     Route: 048
     Dates: start: 20130215, end: 20130218

REACTIONS (8)
  - Mucosal inflammation [Fatal]
  - Diarrhoea [Fatal]
  - Neutropenia [Fatal]
  - Thrombocytopenia [Fatal]
  - Anuria [Fatal]
  - Skin exfoliation [Not Recovered/Not Resolved]
  - Petechiae [Not Recovered/Not Resolved]
  - Skin fissures [Not Recovered/Not Resolved]
